FAERS Safety Report 15022675 (Version 3)
Quarter: 2018Q3

REPORT INFORMATION
  Report Type: Spontaneous
  Country: NO (occurrence: NO)
  Receive Date: 20180618
  Receipt Date: 20180725
  Transmission Date: 20181010
  Serious: No
  Sender: FDA-Public Use
  Company Number: NO-PFIZER INC-2018240510

PATIENT
  Age: 57 Year
  Sex: Male

DRUGS (1)
  1. TERRA?CORTRIL POLYMYXIN B [Suspect]
     Active Substance: HYDROCORTISONE\OXYTETRACYCLINE HYDROCHLORIDE\POLYMYXIN B SULFATE
     Indication: ECZEMA
     Dosage: 1 DF, SINGLE
     Route: 001
     Dates: start: 2018

REACTIONS (6)
  - Inner ear disorder [Not Recovered/Not Resolved]
  - Hypoacusis [Recovering/Resolving]
  - Dizziness [Not Recovered/Not Resolved]
  - Balance disorder [Not Recovered/Not Resolved]
  - Product quality issue [Not Recovered/Not Resolved]
  - Accidental overdose [Not Recovered/Not Resolved]

NARRATIVE: CASE EVENT DATE: 2018
